FAERS Safety Report 18009108 (Version 1)
Quarter: 2020Q3

REPORT INFORMATION
  Report Type: Spontaneous
  Country: US (occurrence: US)
  Receive Date: 20200710
  Receipt Date: 20200710
  Transmission Date: 20201103
  Serious: No
  Sender: FDA-Public Use
  Company Number: US-SAOL THERAPEUTICS-2019SAO00447

PATIENT
  Age: 65 Year
  Sex: Male
  Weight: 97.51 kg

DRUGS (8)
  1. LIORESAL [Suspect]
     Active Substance: BACLOFEN
     Indication: MUSCLE SPASTICITY
     Dosage: 225 ?G, \DAY
     Route: 037
     Dates: start: 2015, end: 201908
  2. LIORESAL [Suspect]
     Active Substance: BACLOFEN
     Dosage: 220 ?G, \DAY
     Route: 037
     Dates: start: 20191107
  3. LIORESAL [Suspect]
     Active Substance: BACLOFEN
     Dosage: 220 ?G, \DAY; DURING THE DAY (ALSO REPORTED AS 225 ?G/DAY)
     Route: 037
     Dates: start: 201910, end: 20191107
  4. LIORESAL [Suspect]
     Active Substance: BACLOFEN
     Indication: MULTIPLE SCLEROSIS
     Dosage: 240 ?G, 1X/DAY;
     Route: 037
     Dates: start: 201908, end: 2019
  5. CRESTOR [Concomitant]
     Active Substance: ROSUVASTATIN CALCIUM
  6. LIORESAL [Suspect]
     Active Substance: BACLOFEN
     Dosage: 240 ?G, \DAY; AT NIGHT (ALSO REPORTED AS 245 ?G/DAY BETWEEN 9PM?1AM)
     Route: 037
     Dates: start: 201910, end: 20191107
  7. VITAMIN D [Concomitant]
     Active Substance: VITAMIN D NOS
  8. BABY ASPIRIN [Concomitant]
     Active Substance: ASPIRIN

REACTIONS (5)
  - Mobility decreased [Recovered/Resolved]
  - Muscle tightness [Not Recovered/Not Resolved]
  - Muscle spasticity [Not Recovered/Not Resolved]
  - Musculoskeletal stiffness [Not Recovered/Not Resolved]
  - Therapeutic response changed [Not Recovered/Not Resolved]

NARRATIVE: CASE EVENT DATE: 201908
